FAERS Safety Report 4319991-2 (Version None)
Quarter: 2004Q1

REPORT INFORMATION
  Report Type: 
  Country: None (occurrence: None)
  Receive Date: 20040315
  Receipt Date: 20031212
  Transmission Date: 20041129
  Serious: No
  Sender: FDA-Public Use
  Company Number: 2003190487US

PATIENT
  Age: 75 Year
  Sex: Male
  Weight: 61.7 kg

DRUGS (1)
  1. BEXTRA [Suspect]
     Indication: EXOSTOSIS
     Dosage: 10 MG, QD
     Dates: start: 20031120, end: 20031204

REACTIONS (3)
  - DRUG INEFFECTIVE [None]
  - MUSCLE CRAMP [None]
  - SLEEP DISORDER [None]
